FAERS Safety Report 9750652 (Version 1)
Quarter: 2013Q4

REPORT INFORMATION
  Report Type: Spontaneous
  Country: US (occurrence: US)
  Receive Date: 20131212
  Receipt Date: 20131212
  Transmission Date: 20140711
  Serious: No
  Sender: FDA-Public Use
  Company Number: US-BIOGENIDEC-2013BI099008

PATIENT
  Age: 32 Year
  Sex: Female

DRUGS (12)
  1. TECFIDERA [Suspect]
     Indication: MULTIPLE SCLEROSIS
     Route: 048
     Dates: start: 201310
  2. TECFIDERA [Suspect]
     Indication: MULTIPLE SCLEROSIS
     Route: 048
  3. ZOLOFT [Concomitant]
  4. MARINOL [Concomitant]
  5. NEURONTIN [Concomitant]
  6. ADDERALL [Concomitant]
  7. WELLBUTRIN XL [Concomitant]
  8. LORTAB [Concomitant]
  9. ATIVAN [Concomitant]
  10. CALCIUM + D AND MIN CHEW [Concomitant]
  11. CVS VITAMIN D [Concomitant]
  12. ZOLOFT [Concomitant]

REACTIONS (1)
  - Flushing [Not Recovered/Not Resolved]
